FAERS Safety Report 7792558-X (Version None)
Quarter: 2011Q4

REPORT INFORMATION
  Report Type: 
  Country: None (occurrence: None)
  Receive Date: 20111003
  Receipt Date: 20110920
  Transmission Date: 20120403
  Serious: Yes (Other)
  Sender: FDA-Public Use
  Company Number: KR-JNJFOC-20110911911

PATIENT
  Age: 60 Day
  Sex: Male

DRUGS (2)
  1. TYLENOL-500 [Suspect]
     Indication: PYREXIA
     Route: 042
     Dates: start: 20110919, end: 20110919
  2. TYLENOL-500 [Suspect]
     Route: 042

REACTIONS (3)
  - RESPIRATORY DISORDER [None]
  - RASH ERYTHEMATOUS [None]
  - WRONG TECHNIQUE IN DRUG USAGE PROCESS [None]
